FAERS Safety Report 10396722 (Version 2)
Quarter: 2014Q3

REPORT INFORMATION
  Report Type: Spontaneous
  Country: CA (occurrence: CA)
  Receive Date: 20140820
  Receipt Date: 20140926
  Transmission Date: 20150326
  Serious: Yes (Hospitalization)
  Sender: FDA-Public Use
  Company Number: CA-BRISTOL-MYERS SQUIBB COMPANY-21298047

PATIENT
  Age: 56 Year
  Sex: Female

DRUGS (2)
  1. ABILIFY MAINTENA [Suspect]
     Active Substance: ARIPIPRAZOLE
     Indication: SCHIZOPHRENIA
     Route: 030
     Dates: start: 20140725
  2. ABILIFY [Suspect]
     Active Substance: ARIPIPRAZOLE
     Indication: SCHIZOPHRENIA
     Dosage: 10MG: JUL 4 DOSE INCREASED TO 10MG
     Route: 048
     Dates: start: 20140602

REACTIONS (3)
  - Vomiting [Unknown]
  - Psychiatric decompensation [Unknown]
  - Nausea [Unknown]

NARRATIVE: CASE EVENT DATE: 20140727
